FAERS Safety Report 7783082-9 (Version None)
Quarter: 2011Q3

REPORT INFORMATION
  Report Type: 
  Country: None (occurrence: None)
  Receive Date: 20110926
  Receipt Date: 20110912
  Transmission Date: 20111222
  Serious: Yes (Death)
  Sender: FDA-Public Use
  Company Number: 1000023888

PATIENT
  Age: 94 Year
  Sex: Male

DRUGS (5)
  1. VALPROIC ACID [Concomitant]
  2. LORAZEPAM [Concomitant]
  3. TRAZOLAN (TRAZODONE HYDROCHLORIDE) (TRAZODONE HYDROCHLORIDE) [Concomitant]
  4. LEPONEX (CLOZAPINE) (CLOZAPINE) [Concomitant]
  5. MEMANTINE HYDROCHLORIDE [Suspect]
     Indication: DEMENTIA ALZHEIMER'S TYPE
     Dosage: 20 MG (20 MG,1 IN 1 D),ORAL
     Route: 048
     Dates: start: 20110816, end: 20110101

REACTIONS (8)
  - DRUG INTERACTION [None]
  - ARRHYTHMIA [None]
  - ABNORMAL BEHAVIOUR [None]
  - MOBILITY DECREASED [None]
  - MALNUTRITION [None]
  - AGITATION [None]
  - DEHYDRATION [None]
  - HALLUCINATION [None]
